FAERS Safety Report 4640120-X (Version None)
Quarter: 2005Q2

REPORT INFORMATION
  Report Type: 
  Country: None (occurrence: None)
  Receive Date: 20050420
  Receipt Date: 20050127
  Transmission Date: 20051028
  Serious: Yes (Hospitalization, Disabling)
  Sender: FDA-Public Use
  Company Number: US-ROCHE-394076

PATIENT
  Age: 55 Year
  Sex: Male
  Weight: 70.8 kg

DRUGS (2)
  1. CELLCEPT [Suspect]
     Indication: HEART TRANSPLANT
     Route: 048
     Dates: start: 20040928, end: 20050124
  2. VALCYTE [Concomitant]
     Dates: start: 20041122, end: 20050310

REACTIONS (7)
  - BLOOD CREATININE INCREASED [None]
  - COLITIS [None]
  - CYTOMEGALOVIRUS GASTROINTESTINAL INFECTION [None]
  - DIARRHOEA [None]
  - NAUSEA [None]
  - VOMITING [None]
  - WEIGHT DECREASED [None]
